FAERS Safety Report 8416993-1 (Version None)
Quarter: 2012Q2

REPORT INFORMATION
  Report Type: 
  Country: None (occurrence: None)
  Receive Date: 20120606
  Receipt Date: 20120530
  Transmission Date: 20120825
  Serious: Yes (Hospitalization)
  Sender: FDA-Public Use
  Company Number: FI-B.I. PHARMACEUTICALS,INC./RIDGEFIELD-2011-RD-00204DE

PATIENT
  Sex: Male
  Weight: 92 kg

DRUGS (5)
  1. TELMISARTAN [Concomitant]
     Indication: HYPERTENSION
  2. DIPROSALIC [Concomitant]
     Indication: PSORIASIS
     Dates: start: 20110921
  3. BEMETSON CREM [Concomitant]
     Indication: PSORIASIS
  4. BI 1356 [Suspect]
     Indication: TYPE 2 DIABETES MELLITUS
     Route: 048
     Dates: start: 20110804
  5. APOLAR [Concomitant]
     Indication: PSORIASIS
     Dates: start: 20110921

REACTIONS (1)
  - PSORIASIS [None]
